FAERS Safety Report 8162957-5 (Version None)
Quarter: 2012Q1

REPORT INFORMATION
  Report Type: 
  Country: None (occurrence: None)
  Receive Date: 20120224
  Receipt Date: 20120213
  Transmission Date: 20120608
  Serious: No
  Sender: FDA-Public Use
  Company Number: JP-ASTRAZENECA-2012SE09267

PATIENT

DRUGS (2)
  1. OMEPRAZOLE [Suspect]
     Dosage: DOSE UNKNOWN
     Route: 048
  2. SOME DRUGS [Concomitant]

REACTIONS (1)
  - BLOOD CHOLINESTERASE DECREASED [None]
